FAERS Safety Report 4697733-9 (Version None)
Quarter: 2005Q2

REPORT INFORMATION
  Report Type: 
  Country: None (occurrence: None)
  Receive Date: 20050621
  Receipt Date: 20050621
  Transmission Date: 20051028
  Serious: Yes (Other)
  Sender: FDA-Public Use
  Company Number: None

PATIENT
  Age: 52 Year
  Sex: Female
  Weight: 29.5 kg

DRUGS (1)
  1. ROSUVASTATIN [Suspect]
     Indication: DYSLIPIDAEMIA
     Dosage: 5MG  PO  QHS
     Route: 048

REACTIONS (1)
  - DIARRHOEA [None]
